FAERS Safety Report 21044606 (Version 1)
Quarter: 2022Q3

REPORT INFORMATION
  Report Type: Spontaneous
  Country: IT (occurrence: IT)
  Receive Date: 20220705
  Receipt Date: 20220705
  Transmission Date: 20221027
  Serious: Yes (Other)
  Sender: FDA-Public Use
  Company Number: IT-ALLERGAN-2221504US

PATIENT
  Sex: Male

DRUGS (3)
  1. SILODOSIN [Suspect]
     Active Substance: SILODOSIN
     Indication: Benign prostatic hyperplasia
     Dosage: 4 MG
  2. SILODOSIN [Suspect]
     Active Substance: SILODOSIN
     Dosage: 8 MILLIGRAM QD AFTER DINNER
  3. LINAGLIPTIN [Concomitant]
     Active Substance: LINAGLIPTIN
     Indication: Glucose tolerance impaired

REACTIONS (2)
  - Dysentery [Recovered/Resolved]
  - Intentional product use issue [Unknown]
